FAERS Safety Report 25008512 (Version 1)
Quarter: 2025Q1

REPORT INFORMATION
  Report Type: Spontaneous
  Country: IN (occurrence: IN)
  Receive Date: 20250225
  Receipt Date: 20250225
  Transmission Date: 20250409
  Serious: Yes (Life-Threatening, Hospitalization)
  Sender: MYLAN
  Company Number: IN-MYLANLABS-2025M1015274

PATIENT
  Sex: Male

DRUGS (10)
  1. PHENYTOIN [Suspect]
     Active Substance: PHENYTOIN
     Indication: Febrile infection-related epilepsy syndrome
  2. MIDAZOLAM [Suspect]
     Active Substance: MIDAZOLAM
     Indication: Febrile infection-related epilepsy syndrome
     Dosage: 4 MICROGRAM/KILOGRAM, QMINUTE, INFUSION
  3. MIDAZOLAM [Suspect]
     Active Substance: MIDAZOLAM
     Dosage: 15 MICROGRAM/KILOGRAM, QMINUTE, INFUSION
  4. VALPROATE [Suspect]
     Active Substance: VALPROIC ACID
     Indication: Febrile infection-related epilepsy syndrome
  5. FOSPHENYTOIN [Suspect]
     Active Substance: FOSPHENYTOIN
     Indication: Febrile infection-related epilepsy syndrome
  6. MANNITOL [Suspect]
     Active Substance: MANNITOL
     Indication: Febrile infection-related epilepsy syndrome
  7. KETAMINE [Suspect]
     Active Substance: KETAMINE
     Indication: Febrile infection-related epilepsy syndrome
     Dosage: 7 MILLIGRAM/KILOGRAM, QH
  8. LEVETIRACETAM [Concomitant]
     Active Substance: LEVETIRACETAM
     Indication: Febrile infection-related epilepsy syndrome
  9. PHENOBARBITAL [Concomitant]
     Active Substance: PHENOBARBITAL
     Indication: Febrile infection-related epilepsy syndrome
  10. PHENOBARBITAL [Concomitant]
     Active Substance: PHENOBARBITAL
     Dosage: 30 MILLIGRAM/KILOGRAM, QD

REACTIONS (1)
  - Drug ineffective [Unknown]
